FAERS Safety Report 4903322-0 (Version None)
Quarter: 2006Q1

REPORT INFORMATION
  Report Type: 
  Country: None (occurrence: None)
  Receive Date: 20060206
  Receipt Date: 20060206
  Transmission Date: 20060701
  Serious: Yes (Other)
  Sender: FDA-Public Use
  Company Number: None

PATIENT

DRUGS (1)
  1. DIGITEK 0.25MG BERTEK [Suspect]
     Dosage: 1 + 1/2 TABLETS DAILY

REACTIONS (1)
  - HEART RATE INCREASED [None]
